FAERS Safety Report 14971992 (Version 1)
Quarter: 2018Q2

REPORT INFORMATION
  Report Type: Spontaneous
  Country: IT (occurrence: IT)
  Receive Date: 20180605
  Receipt Date: 20180605
  Transmission Date: 20180711
  Serious: Yes (Life-Threatening)
  Sender: FDA-Public Use
  Company Number: IT-ACCORD-067638

PATIENT
  Age: 57 Year
  Sex: Male

DRUGS (2)
  1. TRIPTORELIN/TRIPTORELIN ACETATE/TRIPTORELIN EMBONATE [Concomitant]
     Route: 030
     Dates: start: 20170301, end: 20171129
  2. ZOLEDRONIC ACID [Suspect]
     Active Substance: ZOLEDRONIC ACID
     Indication: METASTASES TO BONE
     Route: 042
     Dates: start: 20171113, end: 20171113

REACTIONS (1)
  - Pericarditis [Recovering/Resolving]

NARRATIVE: CASE EVENT DATE: 20171113
